FAERS Safety Report 7741897-7 (Version None)
Quarter: 2011Q3

REPORT INFORMATION
  Report Type: 
  Country: None (occurrence: None)
  Receive Date: 20110906
  Receipt Date: 20110822
  Transmission Date: 20111222
  Serious: Yes (Other)
  Sender: FDA-Public Use
  Company Number: LEO-2011-00600

PATIENT
  Age: 54 Year
  Sex: Male
  Weight: 69 kg

DRUGS (1)
  1. INNOHEP [Suspect]
     Indication: PROSTATECTOMY
     Dosage: 3500 IU, SUBCUTANEOUS
     Route: 058
     Dates: start: 20110709, end: 20110730

REACTIONS (1)
  - THROMBOCYTOSIS [None]
